FAERS Safety Report 10359042 (Version 1)
Quarter: 2014Q3

REPORT INFORMATION
  Report Type: Report from Study
  Country: CA (occurrence: CA)
  Receive Date: 20140804
  Receipt Date: 20140804
  Transmission Date: 20150326
  Serious: Yes (Other)
  Sender: FDA-Public Use
  Company Number: CA-BRISTOL-MYERS SQUIBB COMPANY-21258272

PATIENT
  Age: 64 Year
  Sex: Male

DRUGS (9)
  1. VASOPRIL [Concomitant]
     Active Substance: FOSINOPRIL
  2. ASPIRIN. [Concomitant]
     Active Substance: ASPIRIN
  3. INSULIN-TORONTO [Concomitant]
  4. COVERSYL [Concomitant]
     Active Substance: PERINDOPRIL
  5. TRAMADOL [Concomitant]
     Active Substance: TRAMADOL
  6. ORENCIA [Suspect]
     Active Substance: ABATACEPT
     Indication: RHEUMATOID ARTHRITIS
     Route: 042
     Dates: start: 20130117
  7. PREDNISONE. [Concomitant]
     Active Substance: PREDNISONE
  8. ALDACTONE [Concomitant]
     Active Substance: SPIRONOLACTONE
  9. SIMVASTATIN. [Concomitant]
     Active Substance: SIMVASTATIN

REACTIONS (2)
  - Arthralgia [Unknown]
  - Blindness unilateral [Unknown]
